FAERS Safety Report 23691725 (Version 1)
Quarter: 2024Q2

REPORT INFORMATION
  Report Type: Spontaneous
  Country: GB (occurrence: GB)
  Receive Date: 20240401
  Receipt Date: 20240401
  Transmission Date: 20240716
  Serious: Yes (Hospitalization)
  Sender: FDA-Public Use
  Company Number: None

PATIENT
  Age: 51 Year
  Sex: Male

DRUGS (14)
  1. TADALAFIL [Suspect]
     Active Substance: TADALAFIL
     Indication: Product used for unknown indication
  2. LEVEMIR [Concomitant]
     Active Substance: INSULIN DETEMIR
     Dosage: SOLUTION FOR INJECTION IN PRE-FILLED PEN, 100 UNITS / ML
     Route: 058
  3. ALPROSTADIL [Concomitant]
     Active Substance: ALPROSTADIL
     Dosage: POWDER AND SOLVENT FOR SOLUTION FOR INJECTION, USE AS DIRECTED
  4. NOVORAPID [Concomitant]
     Active Substance: INSULIN ASPART
     Dosage: SOLUTION FOR INJECTION IN PRE-FILLED PEN ,BEFORE MEALS/PRN SHORTLY AFTER.
     Route: 058
  5. COCODAMOL [Concomitant]
     Active Substance: ACETAMINOPHEN\CODEINE PHOSPHATE
     Dosage: 30 MG / 500 MG TABLETS ONE OR TWO TO BE TAKEN FOUR TIMES A DAY?WHEN REQUIRED
  6. CLOPIDOGREL [Concomitant]
     Active Substance: CLOPIDOGREL BISULFATE
  7. TACROLIMUS [Concomitant]
     Active Substance: TACROLIMUS
  8. ALPROSTADIL ALFADEX [Concomitant]
     Active Substance: ALPROSTADIL ALFADEX
     Dosage: USE AS DIRECTED
  9. SERTRALINE [Concomitant]
     Active Substance: SERTRALINE HYDROCHLORIDE
     Dosage: 100 MG OR 50 MG TABLETS ONE TO BE TAKEN EACH DAY
  10. LEVOTHYROXINE SODIUM [Concomitant]
     Active Substance: LEVOTHYROXINE SODIUM
     Dosage: MORNING
  11. ATORVASTATIN [Concomitant]
     Active Substance: ATORVASTATIN
  12. LANSOPRAZOLE [Concomitant]
     Active Substance: LANSOPRAZOLE
     Dosage: MORNING
  13. LISINOPRIL [Concomitant]
     Active Substance: LISINOPRIL
  14. DOXAZOSIN [Concomitant]
     Active Substance: DOXAZOSIN MESYLATE

REACTIONS (2)
  - Cardiac septal hypertrophy [Unknown]
  - Loss of consciousness [Unknown]
